FAERS Safety Report 8347390-5 (Version None)
Quarter: 2012Q2

REPORT INFORMATION
  Report Type: 
  Country: None (occurrence: None)
  Receive Date: 20120509
  Receipt Date: 20120427
  Transmission Date: 20120825
  Serious: Yes (Other)
  Sender: FDA-Public Use
  Company Number: US-ROCHE-1064449

PATIENT
  Sex: Male
  Weight: 74.2 kg

DRUGS (3)
  1. XELODA [Suspect]
     Indication: PRODUCT USED FOR UNKNOWN INDICATION
     Route: 048
     Dates: start: 20120207, end: 20120403
  2. PROCHLORPERAZINE [Concomitant]
     Indication: NAUSEA
     Route: 048
  3. OXYCODONE HCL [Concomitant]
     Indication: PAIN
     Route: 048

REACTIONS (2)
  - LUNG NEOPLASM [None]
  - NEOPLASM PROGRESSION [None]
